FAERS Safety Report 13983024 (Version 3)
Quarter: 2017Q4

REPORT INFORMATION
  Report Type: Spontaneous
  Country: JP (occurrence: JP)
  Receive Date: 20170918
  Receipt Date: 20171016
  Transmission Date: 20180321
  Serious: Yes (Hospitalization)
  Sender: FDA-Public Use
  Company Number: US-ASTRAZENECA-2017SE95049

PATIENT
  Age: 1 Month
  Sex: Male
  Weight: 3.1 kg

DRUGS (4)
  1. SYNAGIS [Suspect]
     Active Substance: PALIVIZUMAB
     Indication: PREMATURE BABY
     Dosage: 47.0MG UNKNOWN
     Route: 030
     Dates: start: 20170804, end: 20170804
  2. SYNAGIS [Suspect]
     Active Substance: PALIVIZUMAB
     Indication: PREMATURE BABY
     Dosage: 47.0MG UNKNOWN
     Route: 030
     Dates: start: 20170906, end: 20170906
  3. SYNAGIS [Suspect]
     Active Substance: PALIVIZUMAB
     Indication: ANTIVIRAL PROPHYLAXIS
     Dosage: 47.0MG UNKNOWN
     Route: 030
     Dates: start: 20170804, end: 20170804
  4. SYNAGIS [Suspect]
     Active Substance: PALIVIZUMAB
     Indication: ANTIVIRAL PROPHYLAXIS
     Dosage: 47.0MG UNKNOWN
     Route: 030
     Dates: start: 20170906, end: 20170906

REACTIONS (4)
  - Seizure [Recovered/Resolved]
  - Apnoeic attack [Recovered/Resolved]
  - Cyanosis [Recovered/Resolved]
  - Anger [Recovered/Resolved]

NARRATIVE: CASE EVENT DATE: 20170804
